FAERS Safety Report 21046964 (Version 1)
Quarter: 2022Q3

REPORT INFORMATION
  Report Type: Spontaneous
  Country: US (occurrence: US)
  Receive Date: 20220706
  Receipt Date: 20220706
  Transmission Date: 20221027
  Serious: Yes (Hospitalization)
  Sender: FDA-Public Use
  Company Number: US-AVET LIFESCIENCES LTD-2022-AVET-000111

PATIENT
  Age: 56 Year
  Sex: Female

DRUGS (3)
  1. METFORMIN [Suspect]
     Active Substance: METFORMIN HYDROCHLORIDE
     Indication: Type 2 diabetes mellitus
     Dosage: 500 MG NIGHTLY
     Route: 065
  2. DULOXETINE [Concomitant]
     Active Substance: DULOXETINE
     Dosage: 60 MG DAILY
  3. ATENOLOL [Concomitant]
     Active Substance: ATENOLOL
     Dosage: 25 MG DAILY

REACTIONS (1)
  - Pancreatitis [Recovered/Resolved]
